FAERS Safety Report 8168405-3 (Version None)
Quarter: 2012Q1

REPORT INFORMATION
  Report Type: 
  Country: None (occurrence: None)
  Receive Date: 20120227
  Receipt Date: 20120221
  Transmission Date: 20120608
  Serious: Yes (Hospitalization)
  Sender: FDA-Public Use
  Company Number: US-MERCK-1201USA03206

PATIENT
  Age: 51 Year
  Sex: Male

DRUGS (2)
  1. BUPIVACAINE HCL [Suspect]
     Indication: PAIN
     Route: 065
  2. ZOCOR [Suspect]
     Route: 065
     Dates: start: 20020101

REACTIONS (2)
  - DRUG INTERACTION [None]
  - HEPATOTOXICITY [None]
